FAERS Safety Report 9261512 (Version 2)
Quarter: 2013Q2

REPORT INFORMATION
  Report Type: Report from Study
  Country: DE (occurrence: DE)
  Receive Date: 20130429
  Receipt Date: 20130513
  Transmission Date: 20140414
  Serious: Yes (Hospitalization)
  Sender: FDA-Public Use
  Company Number: PHHY2013DE041064

PATIENT
  Sex: Female
  Weight: 49 kg

DRUGS (2)
  1. EXJADE [Suspect]
     Indication: IRON OVERLOAD
     Dosage: 1000 MG PER DAY
     Dates: start: 201108
  2. NOVALGINE [Suspect]
     Indication: ABDOMINAL PAIN
     Dosage: UNK

REACTIONS (5)
  - Depersonalisation [Recovering/Resolving]
  - Memory impairment [Recovering/Resolving]
  - Loss of consciousness [Recovering/Resolving]
  - Abdominal pain [Unknown]
  - Vomiting [Unknown]
